FAERS Safety Report 6377333-5 (Version None)
Quarter: 2009Q3

REPORT INFORMATION
  Report Type: 
  Country: None (occurrence: None)
  Receive Date: 20090925
  Receipt Date: 20090924
  Transmission Date: 20100115
  Serious: Yes (Death)
  Sender: FDA-Public Use
  Company Number: JP-JNJFOC-20090804809

PATIENT
  Sex: Male

DRUGS (6)
  1. DUROTEP MT PATCH [Suspect]
     Route: 062
  2. DUROTEP MT PATCH [Suspect]
     Route: 062
  3. DUROTEP MT PATCH [Suspect]
     Route: 062
  4. DUROTEP MT PATCH [Suspect]
     Route: 062
  5. DUROTEP MT PATCH [Suspect]
     Indication: CANCER PAIN
     Route: 062
  6. MORPHINE HYDROCHLORIDE [Concomitant]
     Indication: CANCER PAIN
     Route: 042

REACTIONS (2)
  - OESOPHAGEAL CARCINOMA [None]
  - WRONG TECHNIQUE IN DRUG USAGE PROCESS [None]
